FAERS Safety Report 25640075 (Version 1)
Quarter: 2025Q3

REPORT INFORMATION
  Report Type: Spontaneous
  Country: US (occurrence: None)
  Receive Date: 20250804
  Receipt Date: 20250804
  Transmission Date: 20251020
  Serious: Yes (Hospitalization)
  Sender: FDA-CTU
  Company Number: None

PATIENT
  Sex: Female

DRUGS (11)
  1. LENALIDOMIDE [Suspect]
     Active Substance: LENALIDOMIDE
     Indication: Plasma cell myeloma
     Dates: start: 20250304
  2. ASCORBIC ACD TAB [Concomitant]
  3. CALCIUM 500 TAB +D [Concomitant]
  4. COLACE CAP [Concomitant]
  5. ENTRESTO TAB 49-51MG [Concomitant]
  6. IBUPROFEN TAB [Concomitant]
  7. LEVOTHYROXIN CAP [Concomitant]
  8. LOSARTAN POT TAB [Concomitant]
  9. METHOCARBAM TAB [Concomitant]
  10. MILK OF MAGN SUS [Concomitant]
  11. MIRALAX POW 3350 NF [Concomitant]

REACTIONS (5)
  - Pneumonia [None]
  - Oedema peripheral [None]
  - Polyneuropathy chronic [None]
  - Anaemia [None]
  - Thrombocytopenia [None]
